FAERS Safety Report 6211728-5 (Version None)
Quarter: 2009Q2

REPORT INFORMATION
  Report Type: 
  Country: None (occurrence: None)
  Receive Date: 20090602
  Receipt Date: 20090520
  Transmission Date: 20091009
  Serious: No
  Sender: FDA-Public Use
  Company Number: FR-PFIZER INC-2009205897

PATIENT
  Age: 59 Year

DRUGS (7)
  1. CHAMPIX [Suspect]
     Indication: SMOKING CESSATION THERAPY
     Dosage: 1 MG, 2X/DAY
     Dates: start: 20071011
  2. FORADIL [Concomitant]
     Indication: ASTHMA
     Dosage: UNK
  3. MIFLASONE [Concomitant]
     Indication: ASTHMA
     Dosage: UNK
  4. SINGULAIR [Concomitant]
     Indication: ASTHMA
     Dosage: UNK
  5. AERIUS [Concomitant]
     Indication: ASTHMA
     Dosage: UNK
  6. ISOPTIN [Concomitant]
     Indication: HYPERTENSION
     Dosage: UNK
  7. GAVISCON [Concomitant]
     Indication: GASTROOESOPHAGEAL REFLUX DISEASE
     Dosage: UNK
     Route: 046

REACTIONS (4)
  - ANXIETY [None]
  - BULIMIA NERVOSA [None]
  - NERVOUSNESS [None]
  - WEIGHT INCREASED [None]
